FAERS Safety Report 8450332-5 (Version None)
Quarter: 2012Q2

REPORT INFORMATION
  Report Type: 
  Country: None (occurrence: None)
  Receive Date: 20120613
  Receipt Date: 20120613
  Transmission Date: 20120825
  Serious: Yes (Other)
  Sender: FDA-Public Use
  Company Number: None

PATIENT
  Sex: Female

DRUGS (1)
  1. MIRTAZAPINE [Suspect]
     Indication: INSOMNIA
     Dosage: 7.5 MG, EVERY NIGHT, PO
     Route: 048
     Dates: start: 20120612

REACTIONS (9)
  - PANIC ATTACK [None]
  - HEADACHE [None]
  - CHILLS [None]
  - PALPITATIONS [None]
  - INSOMNIA [None]
  - DYSPNOEA [None]
  - DIZZINESS [None]
  - BLOOD PRESSURE INCREASED [None]
  - BLOOD GLUCOSE INCREASED [None]
